FAERS Safety Report 16779152 (Version 1)
Quarter: 2019Q3

REPORT INFORMATION
  Report Type: Spontaneous
  Country: US (occurrence: US)
  Receive Date: 20190906
  Receipt Date: 20190906
  Transmission Date: 20191005
  Serious: No
  Sender: FDA-Public Use
  Company Number: US-GLAXOSMITHKLINE-US2019158247

PATIENT
  Age: 67 Year
  Sex: Female

DRUGS (3)
  1. EQUATE NICOTINE [Suspect]
     Active Substance: NICOTINE
     Indication: SMOKING CESSATION THERAPY
     Dosage: 14 MG, UNK
  2. EQUATE NICOTINE [Suspect]
     Active Substance: NICOTINE
     Indication: SMOKING CESSATION THERAPY
     Dosage: UNK
  3. EQUATE NICOTINE [Suspect]
     Active Substance: NICOTINE
     Dosage: 14 MG, UNK

REACTIONS (2)
  - Product complaint [Unknown]
  - Nicotine dependence [Unknown]
